FAERS Safety Report 7731855-0 (Version None)
Quarter: 2011Q3

REPORT INFORMATION
  Report Type: 
  Country: None (occurrence: None)
  Receive Date: 20110906
  Receipt Date: 20110829
  Transmission Date: 20111222
  Serious: Yes (Other)
  Sender: FDA-Public Use
  Company Number: ZA-ROCHE-799819

PATIENT
  Sex: Male

DRUGS (2)
  1. PEGINTERFERON ALFA-2A [Suspect]
     Route: 065
     Dates: start: 20101020
  2. RIBAVIRIN [Suspect]
     Route: 065

REACTIONS (4)
  - WEIGHT DECREASED [None]
  - MASS [None]
  - NEUTROPENIA [None]
  - PLATELET COUNT DECREASED [None]
